FAERS Safety Report 7617508-8 (Version None)
Quarter: 2011Q3

REPORT INFORMATION
  Report Type: 
  Country: None (occurrence: None)
  Receive Date: 20110718
  Receipt Date: 20110705
  Transmission Date: 20111222
  Serious: Yes (Hospitalization)
  Sender: FDA-Public Use
  Company Number: US-ELI_LILLY_AND_COMPANY-US201107001866

PATIENT
  Age: 51 Year
  Sex: Female
  Weight: 58 kg

DRUGS (4)
  1. PRISTIQ [Concomitant]
     Indication: ANXIETY
     Dosage: 50 MG, QD
     Dates: start: 20100101, end: 20110601
  2. PROZAC [Suspect]
     Indication: DEPRESSION
  3. PRISTIQ [Concomitant]
     Dosage: 100 MG, QD
     Dates: start: 20110601, end: 20110601
  4. TRAZODONE [Concomitant]
     Indication: SLEEP DISORDER
     Dosage: 50 MG, PRN
     Route: 048

REACTIONS (7)
  - CONFUSIONAL STATE [None]
  - PANIC ATTACK [None]
  - MALAISE [None]
  - DISORIENTATION [None]
  - MENTAL DISORDER [None]
  - FEELING ABNORMAL [None]
  - DRUG INEFFECTIVE [None]
